FAERS Safety Report 20520412 (Version 3)
Quarter: 2025Q2

REPORT INFORMATION
  Report Type: Report from Study
  Country: US (occurrence: US)
  Receive Date: 20220225
  Receipt Date: 20250513
  Transmission Date: 20250716
  Serious: No
  Sender: NOVARTIS
  Company Number: US-NOVARTISTESTPH-NVSC2022US042639

PATIENT
  Age: 42 Year
  Sex: Female

DRUGS (1)
  1. KESIMPTA [Suspect]
     Active Substance: OFATUMUMAB
     Indication: Multiple sclerosis
     Dosage: 20 MG, QMO (0.4 ML)
     Route: 058

REACTIONS (2)
  - Maternal exposure timing unspecified [Unknown]
  - Normal newborn [Unknown]

NARRATIVE: CASE EVENT DATE: 20221204
